FAERS Safety Report 20130937 (Version 1)
Quarter: 2021Q4

REPORT INFORMATION
  Report Type: Report from Study
  Country: LB (occurrence: LB)
  Receive Date: 20211130
  Receipt Date: 20211130
  Transmission Date: 20220303
  Serious: Yes (Other)
  Sender: FDA-Public Use
  Company Number: LB-NOVARTISPH-NVSC2021LB202503

PATIENT
  Age: 55 Year
  Sex: Female
  Weight: 68 kg

DRUGS (4)
  1. GLIVEC [Suspect]
     Active Substance: IMATINIB MESYLATE
     Indication: Gastrointestinal stromal tumour
     Dosage: 200 UNK
     Route: 048
     Dates: start: 20200324
  2. VITAMIN B [Concomitant]
     Active Substance: VITAMIN B
     Indication: Product used for unknown indication
     Dosage: 1 DF, QD (100,000MCG)
     Route: 065
  3. CALCIUM CALVIVE [Concomitant]
     Indication: Product used for unknown indication
     Dosage: 1 DF, QD (600 MG)
     Route: 065
  4. PROFINAL [Concomitant]
     Indication: Product used for unknown indication
     Dosage: 2 DF (PRN EXTREM PAIN)
     Route: 065

REACTIONS (5)
  - Hepatic neoplasm [Not Recovered/Not Resolved]
  - Tonsillitis [Recovered/Resolved]
  - Pyrexia [Recovered/Resolved]
  - Renal neoplasm [Not Recovered/Not Resolved]
  - Tonsillitis [Recovered/Resolved]

NARRATIVE: CASE EVENT DATE: 20210824
